FAERS Safety Report 23132380 (Version 1)
Quarter: 2023Q4

REPORT INFORMATION
  Report Type: Spontaneous
  Country: US (occurrence: US)
  Receive Date: 20231101
  Receipt Date: 20231101
  Transmission Date: 20240110
  Serious: Yes (Other)
  Sender: FDA-Public Use
  Company Number: US-SA-SAC20231030002247

PATIENT
  Sex: Female
  Weight: 21.3 kg

DRUGS (15)
  1. KEVZARA [Suspect]
     Active Substance: SARILUMAB
     Indication: Rheumatoid arthritis
     Dosage: 200 MG, QOW
     Route: 058
     Dates: start: 20221130
  2. ACETAMINOPHEN\HYDROCODONE [Concomitant]
     Active Substance: ACETAMINOPHEN\HYDROCODONE
  3. GABAPENTIN [Concomitant]
     Active Substance: GABAPENTIN
  4. CLONAZEPAM [Concomitant]
     Active Substance: CLONAZEPAM
  5. HYDROXYZINE HYDROCHLORIDE [Concomitant]
     Active Substance: HYDROXYZINE HYDROCHLORIDE
     Dosage: UNK
  6. DICLOFENAC SODIUM [Concomitant]
     Active Substance: DICLOFENAC\DICLOFENAC SODIUM
     Dosage: UNK
  7. PRAMIPEXOLE DIHYDROCHLORIDE [Concomitant]
     Active Substance: PRAMIPEXOLE DIHYDROCHLORIDE
     Dosage: UNK
  8. ROPINIROLE [Concomitant]
     Active Substance: ROPINIROLE
  9. VERAPAMIL [Concomitant]
     Active Substance: VERAPAMIL HYDROCHLORIDE
  10. LISINOPRIL [Concomitant]
     Active Substance: LISINOPRIL
     Dosage: UNK
  11. SYNTHROID [Concomitant]
     Active Substance: LEVOTHYROXINE SODIUM
  12. BUSPIRONE HCL [Concomitant]
     Active Substance: BUSPIRONE HYDROCHLORIDE
  13. ESTRADIOL [Concomitant]
     Active Substance: ESTRADIOL
     Dosage: ONCE WEEKLY
  14. MODERNA COVID-19 VACCINE [Concomitant]
     Active Substance: ELASOMERAN
  15. B12 ACTIVE [Concomitant]

REACTIONS (4)
  - Rheumatoid arthritis [Not Recovered/Not Resolved]
  - Illness [Not Recovered/Not Resolved]
  - Thermal burn [Not Recovered/Not Resolved]
  - Burn infection [Not Recovered/Not Resolved]
